FAERS Safety Report 4409933-3 (Version None)
Quarter: 2004Q3

REPORT INFORMATION
  Report Type: 
  Country: None (occurrence: None)
  Receive Date: 20040728
  Receipt Date: 20040714
  Transmission Date: 20050211
  Serious: Yes (Other)
  Sender: FDA-Public Use
  Company Number: SE-GLAXOSMITHKLINE-B0339888A

PATIENT
  Age: 10 Year
  Sex: Male

DRUGS (1)
  1. LAMICTAL [Suspect]
     Indication: ELECTROENCEPHALOGRAM ABNORMAL
     Route: 065
     Dates: start: 20040604

REACTIONS (1)
  - AGGRESSION [None]
